FAERS Safety Report 4429457-7 (Version None)
Quarter: 2004Q3

REPORT INFORMATION
  Report Type: 
  Country: None (occurrence: None)
  Receive Date: 20040819
  Receipt Date: 20040810
  Transmission Date: 20050211
  Serious: Yes (Hospitalization)
  Sender: FDA-Public Use
  Company Number: PHRM2004FR02557

PATIENT
  Age: 83 Year
  Sex: Male
  Weight: 70 kg

DRUGS (6)
  1. EXELON [Suspect]
     Indication: DEMENTIA
     Dosage: 4.5 MG, BID
     Route: 048
     Dates: start: 20040618, end: 20040720
  2. EXELON [Suspect]
     Dosage: 6 MG, QD
     Route: 048
     Dates: end: 20040617
  3. HALDOL [Suspect]
     Indication: DEMENTIA
     Dosage: 1 MG DAILY
     Route: 048
     Dates: end: 20040716
  4. LOXAPINE HCL [Concomitant]
     Indication: DEMENTIA
     Dosage: 2 DF DAILY
     Route: 030
     Dates: end: 20040702
  5. EQUANIL [Concomitant]
     Indication: DEMENTIA
     Dosage: 800 MG DAILY
     Route: 048
     Dates: end: 20040711
  6. ATARAX [Concomitant]
     Indication: AGITATION
     Dosage: 75 MG, QD

REACTIONS (5)
  - DERMATITIS BULLOUS [None]
  - EOSINOPHILIA [None]
  - PRURITUS [None]
  - RASH MORBILLIFORM [None]
  - RASH PUSTULAR [None]
